FAERS Safety Report 11858625 (Version 1)
Quarter: 2015Q4

REPORT INFORMATION
  Report Type: Spontaneous
  Country: US (occurrence: US)
  Receive Date: 20151222
  Receipt Date: 20151222
  Transmission Date: 20160305
  Serious: No
  Sender: FDA-Public Use
  Company Number: US-BAYER-2015-489882

PATIENT
  Age: 78 Year
  Sex: Female
  Weight: 81.63 kg

DRUGS (4)
  1. TRAMADOL. [Concomitant]
     Active Substance: TRAMADOL
  2. GABAPENTIN. [Concomitant]
     Active Substance: GABAPENTIN
  3. MIRALAX [Suspect]
     Active Substance: POLYETHYLENE GLYCOL 3350
     Indication: CONSTIPATION
     Dosage: 1 DF, QD
     Route: 048
     Dates: start: 201506
  4. CODEINE [Concomitant]
     Active Substance: CODEINE

REACTIONS (4)
  - Product use issue [None]
  - Flatulence [None]
  - Gastrointestinal motility disorder [None]
  - Product use issue [None]

NARRATIVE: CASE EVENT DATE: 201512
